FAERS Safety Report 9353376 (Version 1)
Quarter: 2013Q2

REPORT INFORMATION
  Report Type: Report from Study
  Country: CA (occurrence: CA)
  Receive Date: 20130618
  Receipt Date: 20130618
  Transmission Date: 20140414
  Serious: Yes (Hospitalization)
  Sender: FDA-Public Use
  Company Number: CA-JNJFOC-20130607869

PATIENT
  Age: 37 Year
  Sex: Male
  Weight: 94 kg

DRUGS (3)
  1. REMICADE [Suspect]
     Indication: PSORIASIS
     Route: 042
     Dates: start: 20130205
  2. REMICADE [Suspect]
     Indication: PSORIASIS
     Route: 042
     Dates: start: 20130514
  3. BUSCOPAN [Concomitant]
     Dosage: AS NEEDED
     Route: 048

REACTIONS (3)
  - Hernia repair [Unknown]
  - Abdominal pain [Unknown]
  - Psoriasis [Unknown]
